FAERS Safety Report 4814869-X (Version None)
Quarter: 2005Q4

REPORT INFORMATION
  Report Type: 
  Country: None (occurrence: None)
  Receive Date: 20051028
  Receipt Date: 20051019
  Transmission Date: 20060501
  Serious: Yes (Life-Threatening)
  Sender: FDA-Public Use
  Company Number: IT-ROCHE-421665

PATIENT
  Age: 79 Year
  Sex: Male

DRUGS (3)
  1. TICLID [Suspect]
     Indication: DRUG USE FOR UNKNOWN INDICATION
     Route: 048
     Dates: start: 20050901, end: 20050929
  2. TAVOR [Suspect]
     Indication: DRUG USE FOR UNKNOWN INDICATION
     Route: 048
     Dates: start: 20050901, end: 20050929
  3. SERMION [Suspect]
     Indication: DRUG USE FOR UNKNOWN INDICATION
     Route: 048
     Dates: start: 20050901, end: 20050929

REACTIONS (5)
  - DEHYDRATION [None]
  - DERMATITIS EXFOLIATIVE GENERALISED [None]
  - RENAL FAILURE [None]
  - RESPIRATORY FAILURE [None]
  - VITAL FUNCTIONS ABNORMAL [None]
